FAERS Safety Report 8344453-5 (Version None)
Quarter: 2012Q2

REPORT INFORMATION
  Report Type: 
  Country: None (occurrence: None)
  Receive Date: 20120508
  Receipt Date: 20120425
  Transmission Date: 20120825
  Serious: Yes (Hospitalization)
  Sender: FDA-Public Use
  Company Number: ES-ROCHE-1062840

PATIENT
  Sex: Female
  Weight: 74 kg

DRUGS (3)
  1. PREDNISONE TAB [Concomitant]
     Indication: RHEUMATOID ARTHRITIS
     Route: 048
     Dates: start: 20120113
  2. ACTEMRA [Suspect]
     Indication: RHEUMATOID ARTHRITIS
     Route: 042
     Dates: start: 20120328
  3. HYDROCORTISONE [Suspect]
     Indication: RHEUMATOID ARTHRITIS
     Dates: start: 20120113, end: 20120423

REACTIONS (2)
  - LYMPHADENOPATHY [None]
  - RASH [None]
